FAERS Safety Report 17355632 (Version 4)
Quarter: 2025Q2

REPORT INFORMATION
  Report Type: Spontaneous
  Country: US (occurrence: US)
  Receive Date: 20200131
  Receipt Date: 20250417
  Transmission Date: 20250716
  Serious: No
  Sender: BIOGEN
  Company Number: US-BIOGEN-2020BI00832896

PATIENT
  Sex: Female

DRUGS (1)
  1. TYSABRI [Suspect]
     Active Substance: NATALIZUMAB
     Indication: Multiple sclerosis
     Route: 050
     Dates: start: 20200123

REACTIONS (5)
  - Memory impairment [Unknown]
  - Social avoidant behaviour [Unknown]
  - Confusional state [Unknown]
  - Frustration tolerance decreased [Unknown]
  - Anxiety [Unknown]
